FAERS Safety Report 8791032 (Version 1)
Quarter: 2012Q4

REPORT INFORMATION
  Report Type: 
  Country: US (occurrence: None)
  Receive Date: 20120906
  Receipt Date: 20120906
  Transmission Date: 20130627
  Serious: Yes (Other)
  Sender: FDA-Public Use
  Company Number: HCDA20120070

PATIENT
  Age: 36 Year
  Sex: Female

DRUGS (2)
  1. ACETAMINOPHEN\HYDROCODONE [Suspect]
     Indication: DRUG ABUSE
     Dosage: intra-nasal
  2. Q-PAP TABLETS 325MG (PARACETAMOL) (TABLETS) [Suspect]
     Dosage: intra-nasal

REACTIONS (11)
  - Nasopharyngitis [None]
  - Drug abuse [None]
  - Culture positive [None]
  - Incorrect route of drug administration [None]
  - Wrong technique in drug usage process [None]
  - Euphoric mood [None]
  - Candidiasis [None]
  - Aspergillus test positive [None]
  - Dysphagia [None]
  - Odynophagia [None]
  - Nasal septum perforation [None]
